FAERS Safety Report 5978933-4 (Version None)
Quarter: 2008Q4

REPORT INFORMATION
  Report Type: 
  Country: None (occurrence: None)
  Receive Date: 20081204
  Receipt Date: 20071210
  Transmission Date: 20090506
  Serious: No
  Sender: FDA-Public Use
  Company Number: US-ABBOTT-07P-163-0430092-00

PATIENT
  Sex: Female
  Weight: 104.5 kg

DRUGS (4)
  1. TRICOR [Suspect]
     Indication: BLOOD TRIGLYCERIDES INCREASED
     Route: 048
     Dates: start: 20071123, end: 20071207
  2. ALPRAZOLAM [Concomitant]
     Indication: RELAXATION THERAPY
     Route: 048
  3. ALPRAZOLAM [Concomitant]
     Indication: SLEEP DISORDER THERAPY
  4. TEMAZEPAM [Concomitant]
     Indication: SLEEP DISORDER THERAPY
     Route: 048

REACTIONS (7)
  - ARTHRALGIA [None]
  - CONSTIPATION [None]
  - DRY EYE [None]
  - INFLUENZA [None]
  - INSOMNIA [None]
  - PAIN IN EXTREMITY [None]
  - PYREXIA [None]
